FAERS Safety Report 12772617 (Version 1)
Quarter: 2016Q3

REPORT INFORMATION
  Report Type: Report from Study
  Country: VE (occurrence: VE)
  Receive Date: 20160922
  Receipt Date: 20160922
  Transmission Date: 20161109
  Serious: Yes (Hospitalization)
  Sender: FDA-Public Use
  Company Number: PHHY2016VE129679

PATIENT
  Sex: Male

DRUGS (3)
  1. CYCLOSPORINE. [Concomitant]
     Active Substance: CYCLOSPORINE
     Indication: IMMUNOSUPPRESSION
     Dosage: 100 MG, QD
     Route: 065
  2. EXJADE [Suspect]
     Active Substance: DEFERASIROX
     Indication: IRON OVERLOAD
     Dosage: 1500 MG, QD
     Route: 048
  3. AZATHIOPRINE. [Concomitant]
     Active Substance: AZATHIOPRINE
     Indication: IMMUNOSUPPRESSION
     Dosage: 50 MG, QD
     Route: 065

REACTIONS (7)
  - General physical health deterioration [Unknown]
  - Blood creatinine increased [Recovering/Resolving]
  - Diarrhoea [Unknown]
  - Subcutaneous abscess [Unknown]
  - Immunosuppression [Unknown]
  - Immune system disorder [Unknown]
  - Dehydration [Unknown]
